FAERS Safety Report 5167878-8 (Version None)
Quarter: 2006Q4

REPORT INFORMATION
  Report Type: 
  Country: None (occurrence: None)
  Receive Date: 20061206
  Receipt Date: 20061206
  Transmission Date: 20070319
  Serious: Yes (Hospitalization)
  Sender: FDA-Public Use
  Company Number: None

PATIENT
  Age: 61 Year
  Weight: 61.916 kg

DRUGS (3)
  1. LISINOPRIL [Suspect]
     Indication: DIABETIC NEPHROPATHY
     Dosage: 10MG ORAL QDAY
     Route: 048
  2. LISINOPRIL [Suspect]
     Indication: HYPERTENSION
     Dosage: 10MG ORAL QDAY
     Route: 048
  3. LISINOPRIL [Suspect]
     Indication: PROPHYLAXIS
     Dosage: 10MG ORAL QDAY
     Route: 048

REACTIONS (3)
  - DIZZINESS POSTURAL [None]
  - LIP SWELLING [None]
  - SWELLING FACE [None]
